FAERS Safety Report 8923683 (Version 1)
Quarter: 2012Q4

REPORT INFORMATION
  Report Type: Spontaneous
  Country: US (occurrence: None)
  Receive Date: 20121126
  Receipt Date: 20121126
  Transmission Date: 20130627
  Serious: No
  Sender: FDA-Public Use
  Company Number: None

PATIENT
  Age: 58 Year
  Sex: Female
  Weight: 77.11 kg

DRUGS (1)
  1. KENALOG [Suspect]
     Indication: NECK PAIN
     Dates: start: 20120803, end: 20120904

REACTIONS (4)
  - Pain [None]
  - Nausea [None]
  - Injection site swelling [None]
  - Back pain [None]
